FAERS Safety Report 11258426 (Version 1)
Quarter: 2015Q3

REPORT INFORMATION
  Report Type: Spontaneous
  Country: US (occurrence: None)
  Receive Date: 20150709
  Receipt Date: 20150709
  Transmission Date: 20151125
  Serious: Yes (Disabling, Other)
  Sender: FDA-Public Use
  Company Number: None

PATIENT
  Age: 51 Year
  Sex: Female
  Weight: 44 kg

DRUGS (2)
  1. CLONAZEPEIN .5 MG TABLET [Suspect]
     Active Substance: CLONAZEPAM
     Indication: POST-TRAUMATIC STRESS DISORDER
     Dosage: 1/8 OF 0.5 MG
     Route: 048
     Dates: start: 20150619
  2. CLONAZEPEIN .5 MG TABLET [Suspect]
     Active Substance: CLONAZEPAM
     Indication: ANXIETY
     Dosage: 1/8 OF 0.5 MG
     Route: 048
     Dates: start: 20150619

REACTIONS (5)
  - Brain injury [None]
  - Feeling abnormal [None]
  - Hyperacusis [None]
  - Mental impairment [None]
  - Visual impairment [None]

NARRATIVE: CASE EVENT DATE: 20150619
